FAERS Safety Report 12811165 (Version 1)
Quarter: 2016Q4

REPORT INFORMATION
  Report Type: Spontaneous
  Country: JP (occurrence: JP)
  Receive Date: 20161005
  Receipt Date: 20161005
  Transmission Date: 20170207
  Serious: Yes (Death)
  Sender: FDA-Public Use
  Company Number: JP-PFIZER INC-2016461065

PATIENT
  Age: 8 Decade
  Sex: Female

DRUGS (2)
  1. VANCOMYCIN HCL [Concomitant]
     Active Substance: VANCOMYCIN HYDROCHLORIDE
     Route: 041
  2. ZYVOX [Suspect]
     Active Substance: LINEZOLID
     Dosage: 600 MG, DAILY
     Route: 048

REACTIONS (1)
  - Death [Fatal]
